FAERS Safety Report 24325170 (Version 2)
Quarter: 2024Q4

REPORT INFORMATION
  Report Type: Spontaneous
  Country: CN (occurrence: CN)
  Receive Date: 20240916
  Receipt Date: 20241001
  Transmission Date: 20250114
  Serious: Yes (Hospitalization)
  Sender: NOVARTIS
  Company Number: CN-002147023-NVSC2024CN183914

PATIENT
  Age: 34 Year
  Sex: Female
  Weight: 51 kg

DRUGS (3)
  1. TEGRETOL [Suspect]
     Active Substance: CARBAMAZEPINE
     Indication: Headache
     Dosage: 100 MG, QD
     Route: 048
     Dates: start: 20240824, end: 20240828
  2. TEGRETOL [Suspect]
     Active Substance: CARBAMAZEPINE
     Dosage: 200 MG
     Route: 048
     Dates: start: 20240829, end: 20240829
  3. TEGRETOL [Suspect]
     Active Substance: CARBAMAZEPINE
     Dosage: 200 MG, BID (TABLETS IN THE MORNING AND EVENING)
     Route: 048
     Dates: start: 20240830, end: 20240905

REACTIONS (8)
  - Drug hypersensitivity [Unknown]
  - Rash [Recovering/Resolving]
  - Dizziness [Recovering/Resolving]
  - Asthenia [Recovering/Resolving]
  - Mucocutaneous disorder [Recovering/Resolving]
  - Swelling [Unknown]
  - Dysphagia [Unknown]
  - Oral disorder [Unknown]

NARRATIVE: CASE EVENT DATE: 20240903
